FAERS Safety Report 19990469 (Version 2)
Quarter: 2021Q4

REPORT INFORMATION
  Report Type: Spontaneous
  Country: JP (occurrence: JP)
  Receive Date: 20211025
  Receipt Date: 20211122
  Transmission Date: 20220303
  Serious: Yes (Death)
  Sender: FDA-Public Use
  Company Number: JP-NOVARTISPH-NVSJ2021JP017404

PATIENT
  Age: 65 Year
  Sex: Male

DRUGS (1)
  1. ILARIS [Suspect]
     Active Substance: CANAKINUMAB
     Indication: Familial mediterranean fever
     Dosage: 150 MG
     Route: 058
     Dates: start: 20191226, end: 20201224

REACTIONS (1)
  - Cardiac death [Fatal]
